FAERS Safety Report 11709908 (Version 2)
Quarter: 2015Q4

REPORT INFORMATION
  Report Type: Spontaneous
  Country: US (occurrence: US)
  Receive Date: 20151104
  Receipt Date: 20151110
  Transmission Date: 20160304
  Serious: No
  Sender: FDA-Public Use
  Company Number: US-ELI_LILLY_AND_COMPANY-US201102007213

PATIENT
  Age: 67 Year
  Sex: Female

DRUGS (1)
  1. FORTEO [Suspect]
     Active Substance: TERIPARATIDE
     Indication: OSTEOPOROSIS
     Dosage: UNK, UNKNOWN
     Route: 065

REACTIONS (9)
  - Balance disorder [Unknown]
  - Asthenia [Unknown]
  - Myalgia [Unknown]
  - Weight increased [Unknown]
  - Pain [Unknown]
  - Fatigue [Not Recovered/Not Resolved]
  - Increased appetite [Unknown]
  - Dizziness [Unknown]
  - Muscle spasms [Unknown]
